FAERS Safety Report 8517134-2 (Version None)
Quarter: 2012Q3

REPORT INFORMATION
  Report Type: 
  Country: None (occurrence: None)
  Receive Date: 20120706
  Receipt Date: 20120625
  Transmission Date: 20120928
  Serious: Yes (Hospitalization)
  Sender: FDA-Public Use
  Company Number: AUR-APL-2012-02824

PATIENT
  Age: 75 Year
  Sex: Male
  Weight: 80 kg

DRUGS (9)
  1. RAMIPRIL [Suspect]
     Indication: HYPERTENSION
  2. SIROLIMUS (RAPAMUNE) [Suspect]
     Indication: PROPHYLAXIS AGAINST TRANSPLANT REJECTION
     Dates: start: 20080210
  3. PROTAPHANE HM (INSULIN HUMAN INJECTION, ISOPHANE) [Concomitant]
  4. HYDROCHLOROTHIAZIDE [Concomitant]
  5. MOXONIDINE (MOXONIDINE) [Suspect]
     Indication: HYPERTENSION
  6. PANTOPRAZOLE [Concomitant]
  7. CYCLOSPORINE [Suspect]
     Indication: IMMUNOSUPPRESSION
     Dates: start: 20071109
  8. CELLCEPT [Suspect]
     Indication: IMMUNOSUPPRESSION
  9. ALT-INSULIN (ALT-INSULIN) [Concomitant]

REACTIONS (1)
  - HEPATIC NEOPLASM MALIGNANT RECURRENT [None]
